FAERS Safety Report 19862509 (Version 2)
Quarter: 2021Q4

REPORT INFORMATION
  Report Type: Spontaneous
  Country: US (occurrence: None)
  Receive Date: 20210921
  Receipt Date: 20211102
  Transmission Date: 20220303
  Serious: No
  Sender: FDA-Public Use
  Company Number: 2021A721352

PATIENT
  Sex: Female
  Weight: 122.9 kg

DRUGS (2)
  1. BYDUREON BCISE [Suspect]
     Active Substance: EXENATIDE
     Indication: Type 2 diabetes mellitus
     Route: 058
     Dates: start: 2017
  2. HUMALOG [Concomitant]
     Active Substance: INSULIN LISPRO

REACTIONS (7)
  - Weight fluctuation [Unknown]
  - Blood glucose increased [Not Recovered/Not Resolved]
  - Depression [Unknown]
  - Product dose omission issue [Unknown]
  - Product quality issue [Unknown]
  - Product availability issue [Unknown]
  - Device leakage [Unknown]
